FAERS Safety Report 14247189 (Version 3)
Quarter: 2018Q2

REPORT INFORMATION
  Report Type: Spontaneous
  Country: JP (occurrence: JP)
  Receive Date: 20171204
  Receipt Date: 20180620
  Transmission Date: 20180711
  Serious: Yes (Hospitalization)
  Sender: FDA-Public Use
  Company Number: JP-EISAI MEDICAL RESEARCH-EC-2017-033637

PATIENT
  Age: 26 Year
  Sex: Male

DRUGS (14)
  1. MYSTAN [Suspect]
     Active Substance: CLOBAZAM
     Indication: EPILEPSY
     Route: 048
     Dates: end: 201608
  2. MYSTAN [Suspect]
     Active Substance: CLOBAZAM
     Route: 048
     Dates: start: 20171003, end: 20171106
  3. FYCOMPA [Suspect]
     Active Substance: PERAMPANEL
     Route: 048
     Dates: start: 20161219
  4. MYSTAN [Suspect]
     Active Substance: CLOBAZAM
     Route: 048
     Dates: start: 201609, end: 20170508
  5. MYSTAN [Suspect]
     Active Substance: CLOBAZAM
     Route: 048
     Dates: start: 20170608, end: 20170704
  6. MYSTAN [Suspect]
     Active Substance: CLOBAZAM
     Route: 048
     Dates: start: 20171107, end: 20180211
  7. FYCOMPA [Suspect]
     Active Substance: PERAMPANEL
     Indication: FOCAL DYSCOGNITIVE SEIZURES
     Route: 048
     Dates: start: 20161004, end: 20161031
  8. MYSTAN [Suspect]
     Active Substance: CLOBAZAM
     Route: 048
     Dates: start: 20170509, end: 20170607
  9. MYSTAN [Suspect]
     Active Substance: CLOBAZAM
     Route: 048
     Dates: start: 20180212
  10. MYSTAN [Suspect]
     Active Substance: CLOBAZAM
     Route: 048
     Dates: start: 20170705, end: 20170821
  11. EXCEGRAN [Concomitant]
     Active Substance: ZONISAMIDE
     Indication: EPILEPSY
     Route: 048
     Dates: start: 20151116
  12. FYCOMPA [Suspect]
     Active Substance: PERAMPANEL
     Indication: EPILEPSY
     Route: 048
     Dates: start: 20161101, end: 20161128
  13. FYCOMPA [Suspect]
     Active Substance: PERAMPANEL
     Route: 048
     Dates: start: 20161129, end: 20161218
  14. MYSTAN [Suspect]
     Active Substance: CLOBAZAM
     Route: 048
     Dates: start: 20170822, end: 20171002

REACTIONS (2)
  - Abnormal behaviour [Recovered/Resolved]
  - Hallucination, visual [Recovered/Resolved]

NARRATIVE: CASE EVENT DATE: 20171108
